FAERS Safety Report 18333099 (Version 1)
Quarter: 2020Q4

REPORT INFORMATION
  Report Type: Spontaneous
  Country: DE (occurrence: DE)
  Receive Date: 20201001
  Receipt Date: 20201001
  Transmission Date: 20210113
  Serious: Yes (Death, Hospitalization)
  Sender: FDA-Public Use
  Company Number: DE-TEVA-2020-DE-1832107

PATIENT
  Age: 54 Year
  Sex: Female

DRUGS (6)
  1. DEXAMETHASON [Suspect]
     Active Substance: DEXAMETHASONE
     Dosage: 8 MILLIGRAM DAILY;  1-0-0-0
     Route: 048
  2. SPIRONOLACTON [Concomitant]
     Active Substance: SPIRONOLACTONE
     Dosage: .5 DOSAGE FORMS DAILY; 50 MG, 0.5-0-0-0
     Route: 048
  3. BUPRENORPHIN [Concomitant]
     Active Substance: BUPRENORPHINE
     Dosage: 10 UG / H, CHANGE EVERY 7 DAYS
     Route: 062
  4. MORPHIN [Concomitant]
     Active Substance: MORPHINE
     Dosage: 5 MG, 5X, AMPOULES
     Route: 058
  5. PANTOPRAZOL [Concomitant]
     Active Substance: PANTOPRAZOLE SODIUM
     Dosage: 80 MILLIGRAM DAILY;  1-0-1-0
     Route: 048
  6. METAMIZOL [Concomitant]
     Active Substance: METAMIZOLE SODIUM
     Dosage: 40 GTT, 4X, DROPS
     Route: 048

REACTIONS (6)
  - Vomiting [Unknown]
  - Nausea [Unknown]
  - Depressed level of consciousness [Unknown]
  - Pyrexia [Unknown]
  - Weight decreased [Unknown]
  - Abdominal pain upper [Unknown]
